FAERS Safety Report 5907271-0 (Version None)
Quarter: 2008Q4

REPORT INFORMATION
  Report Type: 
  Country: None (occurrence: None)
  Receive Date: 20081003
  Receipt Date: 20080929
  Transmission Date: 20090506
  Serious: Yes (Death, Other)
  Sender: FDA-Public Use
  Company Number: PHHY2008JP20535

PATIENT
  Sex: Female
  Weight: 40 kg

DRUGS (11)
  1. EXJADE [Suspect]
     Indication: IRON OVERLOAD
     Dosage: 750 MG DAILY
     Route: 048
     Dates: start: 20080820, end: 20080824
  2. EXJADE [Suspect]
     Indication: MYELODYSPLASTIC SYNDROME
  3. MIYA-BM [Concomitant]
     Dosage: 2.0 G, UNK
     Route: 048
     Dates: end: 20080829
  4. PURSENNID                               /SCH/ [Concomitant]
     Indication: CONSTIPATION
     Dosage: 1 DF, UNK
     Route: 048
     Dates: end: 20080829
  5. MAGNESIUM OXIDE [Concomitant]
     Indication: CONSTIPATION
     Dosage: 0.5 G, UNK
     Route: 048
     Dates: end: 20080829
  6. SOLITA T [Concomitant]
     Dosage: 1500 ML, UNK
     Dates: start: 20080831
  7. OMEPRAZOLE [Concomitant]
     Dosage: 40 MG, UNK
     Route: 042
     Dates: start: 20080831
  8. CEFMETAZOLE [Concomitant]
     Indication: INFECTION PROPHYLAXIS
     Dosage: 2 G, UNK
     Dates: start: 20080831
  9. LASIX [Concomitant]
     Indication: POLYURIA
     Dosage: 20 MG, UNK
     Route: 042
     Dates: start: 20080901
  10. LASIX [Concomitant]
     Dosage: 60 MG, UNK
     Route: 042
  11. VEEN-F [Concomitant]
     Dosage: 500 ML, UNK
     Dates: start: 20080902, end: 20080902

REACTIONS (21)
  - ANURIA [None]
  - ASCITES [None]
  - C-REACTIVE PROTEIN INCREASED [None]
  - CARDIAC FAILURE [None]
  - CONDITION AGGRAVATED [None]
  - DIARRHOEA [None]
  - ENTEROCOLITIS [None]
  - GASTROINTESTINAL HAEMORRHAGE [None]
  - GASTROINTESTINAL OEDEMA [None]
  - HAEMATEMESIS [None]
  - HEPATIC FAILURE [None]
  - INFLAMMATION [None]
  - MULTI-ORGAN FAILURE [None]
  - NEUTROPHIL COUNT INCREASED [None]
  - REFLUX OESOPHAGITIS [None]
  - RENAL FAILURE [None]
  - RENAL IMPAIRMENT [None]
  - RESPIRATORY FAILURE [None]
  - URINE OUTPUT DECREASED [None]
  - VASCULITIS GASTROINTESTINAL [None]
  - WHITE BLOOD CELL COUNT INCREASED [None]
